FAERS Safety Report 11844863 (Version 1)
Quarter: 2015Q4

REPORT INFORMATION
  Report Type: Spontaneous
  Country: US (occurrence: US)
  Receive Date: 20151217
  Receipt Date: 20151217
  Transmission Date: 20160305
  Serious: No
  Sender: FDA-Public Use
  Company Number: US-DRREDDYS-USA/USA/15/0049503

PATIENT
  Age: 78 Year
  Sex: Female
  Weight: 52.6 kg

DRUGS (3)
  1. KLONOPIN [Concomitant]
     Active Substance: CLONAZEPAM
     Indication: PRODUCT USED FOR UNKNOWN INDICATION
     Route: 065
  2. CITALOPRAM [Suspect]
     Active Substance: CITALOPRAM HYDROBROMIDE
     Indication: DEPRESSION
     Route: 048
  3. LISINOPRIL. [Concomitant]
     Active Substance: LISINOPRIL
     Indication: HYPERTENSION
     Route: 065

REACTIONS (4)
  - Heart rate irregular [Not Recovered/Not Resolved]
  - Depression [Not Recovered/Not Resolved]
  - Treatment noncompliance [Not Recovered/Not Resolved]
  - Product quality issue [Unknown]
